FAERS Safety Report 11291627 (Version 1)
Quarter: 2015Q3

REPORT INFORMATION
  Report Type: Spontaneous
  Country: US (occurrence: US)
  Receive Date: 20150722
  Receipt Date: 20150722
  Transmission Date: 20151125
  Serious: No
  Sender: FDA-Public Use
  Company Number: US-PFIZER INC-2015240311

PATIENT
  Sex: Female

DRUGS (9)
  1. TYLOL [Suspect]
     Active Substance: ACETAMINOPHEN
     Dosage: UNK
  2. NEURONTIN [Suspect]
     Active Substance: GABAPENTIN
     Dosage: UNK
  3. LOTENOL [Suspect]
     Active Substance: LOTEPREDNOL ETABONATE
  4. TAXOL [Suspect]
     Active Substance: PACLITAXEL
     Dosage: UNK
  5. OXTELLAR XR [Suspect]
     Active Substance: OXCARBAZEPINE
     Dosage: UNK
  6. ULTRAM [Suspect]
     Active Substance: TRAMADOL HYDROCHLORIDE
     Dosage: UNK
  7. ZINAPLEX [Suspect]
     Active Substance: PYRAZINAMIDE
     Dosage: UNK
  8. HYCODONE [Suspect]
     Active Substance: ACETAMINOPHEN\HYDROCODONE BITARTRATE
     Dosage: UNK
  9. LORTAB [Suspect]
     Active Substance: ACETAMINOPHEN\HYDROCODONE BITARTRATE
     Dosage: UNK

REACTIONS (1)
  - Drug hypersensitivity [Unknown]
